FAERS Safety Report 6355039-6 (Version None)
Quarter: 2009Q3

REPORT INFORMATION
  Report Type: 
  Country: None (occurrence: None)
  Receive Date: 20090914
  Receipt Date: 20090902
  Transmission Date: 20100115
  Serious: Yes (Other)
  Sender: FDA-Public Use
  Company Number: B0592852A

PATIENT
  Sex: Female

DRUGS (3)
  1. FOSAMPRENAVIR [Suspect]
     Indication: HIV INFECTION
     Route: 048
     Dates: start: 20050524, end: 20090714
  2. ZIDOVUDINE [Suspect]
     Indication: HIV INFECTION
     Route: 048
     Dates: start: 20071129
  3. STAVUDINE [Concomitant]
     Indication: HIV INFECTION
     Dates: start: 20050524, end: 20080820

REACTIONS (1)
  - NEUTROPHIL COUNT DECREASED [None]
